FAERS Safety Report 11044022 (Version 1)
Quarter: 2015Q2

REPORT INFORMATION
  Report Type: Spontaneous
  Country: US (occurrence: US)
  Receive Date: 20150417
  Receipt Date: 20150417
  Transmission Date: 20150821
  Serious: Yes (Hospitalization)
  Sender: FDA-Public Use
  Company Number: US-PERRIGO-15US003861

PATIENT
  Age: 29 Year
  Sex: Female
  Weight: 55.33 kg

DRUGS (3)
  1. PRENATAL VITAMINS                  /07499601/ [Concomitant]
     Active Substance: VITAMINS
     Indication: SUPPLEMENTATION THERAPY
     Dosage: UNK
     Route: 065
     Dates: start: 201407
  2. BUTOCONAZOLE NITRATE 2% 8F2 [Suspect]
     Active Substance: BUTOCONAZOLE NITRATE
     Indication: FUNGAL INFECTION
     Dosage: 1 PREFILLED APPLICATOR, SINGLE
     Route: 067
     Dates: start: 20140912, end: 20140912
  3. CORTICOSTEROID NOS [Concomitant]
     Active Substance: CORTICOSTEROID NOS
     Indication: LUNG DISORDER
     Dosage: 2 INJECTIONS, UNK
     Route: 065
     Dates: start: 2015, end: 2015

REACTIONS (7)
  - Uterine contractions during pregnancy [Recovered/Resolved]
  - Breech delivery [None]
  - Off label use [Recovered/Resolved]
  - Premature labour [Recovered/Resolved]
  - Maternal exposure during pregnancy [Recovered/Resolved]
  - Amniotic fluid volume increased [Recovered/Resolved]
  - Caesarean section [None]

NARRATIVE: CASE EVENT DATE: 2014
